FAERS Safety Report 10573692 (Version 1)
Quarter: 2014Q4

REPORT INFORMATION
  Report Type: Report from Study
  Country: US (occurrence: US)
  Receive Date: 20141110
  Receipt Date: 20141110
  Transmission Date: 20150529
  Serious: Yes (Hospitalization)
  Sender: FDA-Public Use
  Company Number: US-TEVA-520675USA

PATIENT
  Age: 55 Year
  Sex: Female
  Weight: 72.46 kg

DRUGS (25)
  1. CARBOPLATIN. [Suspect]
     Active Substance: CARBOPLATIN
     Indication: BREAST CANCER
     Route: 042
     Dates: start: 20140521, end: 20140730
  2. PACLITAXEL. [Suspect]
     Active Substance: PACLITAXEL
     Route: 042
     Dates: start: 20140723, end: 20140813
  3. IBUPROFEN. [Concomitant]
     Active Substance: IBUPROFEN
     Indication: PREMEDICATION
     Dosage: AS REQUIRED
     Route: 048
     Dates: start: 20140521
  4. ABT-888 (VELIPARIB) [Suspect]
     Active Substance: VELIPARIB
     Indication: BREAST CANCER
     Route: 048
     Dates: start: 20140521, end: 20140604
  5. NEUPOGEN [Concomitant]
     Active Substance: FILGRASTIM
     Dosage: AS REQUIRED
     Dates: start: 20140702
  6. DEXAMETHASONE. [Concomitant]
     Active Substance: DEXAMETHASONE
     Indication: PREMEDICATION
     Dosage: AS REQUIRED
     Route: 041
     Dates: start: 20140521, end: 20140813
  7. HYDROCODONE [Concomitant]
     Active Substance: HYDROCODONE
     Indication: BREAST PAIN
     Dosage: AS REQUIRED
     Route: 048
     Dates: start: 20140523
  8. HYDROCODONE [Concomitant]
     Active Substance: HYDROCODONE
     Dosage: AS REQUIRED
     Route: 048
     Dates: start: 20140613
  9. RANITIDINE [Concomitant]
     Active Substance: RANITIDINE\RANITIDINE HYDROCHLORIDE
     Indication: PROPHYLACTIC CHEMOTHERAPY
     Dosage: 300 MILLIGRAM DAILY;
     Route: 048
     Dates: start: 20140512
  10. OXYCODONE HYDROCHLORIDE. [Concomitant]
     Active Substance: OXYCODONE HYDROCHLORIDE
     Indication: PAIN
     Dosage: AS REQUIRED
     Route: 048
     Dates: start: 20140613
  11. OXYCODONE HYDROCHLORIDE. [Concomitant]
     Active Substance: OXYCODONE HYDROCHLORIDE
     Dosage: AS REQUIRED
     Route: 048
     Dates: start: 20140613
  12. DOXORUBICIN [Suspect]
     Active Substance: DOXORUBICIN
     Indication: BREAST CANCER
     Route: 042
     Dates: start: 20140828
  13. PACLITAXEL. [Suspect]
     Active Substance: PACLITAXEL
     Indication: BREAST CANCER
     Route: 042
     Dates: start: 20140521, end: 20140716
  14. LORAZEPAM. [Concomitant]
     Active Substance: LORAZEPAM
     Indication: ANXIETY
     Route: 048
     Dates: start: 20140506
  15. ONDANSETRON [Concomitant]
     Active Substance: ONDANSETRON
     Indication: NAUSEA
     Dosage: AS REQUIRED
     Route: 048
     Dates: start: 20140523
  16. ABT-888 (VELIPARIB) [Suspect]
     Active Substance: VELIPARIB
     Route: 048
     Dates: start: 20140611, end: 20140820
  17. DEXAMETHASONE. [Concomitant]
     Active Substance: DEXAMETHASONE
     Indication: PROPHYLACTIC CHEMOTHERAPY
     Dosage: 6 HRS AND 12 HRS PRIOR TO CHEMOTHERAPY EACH CYCLE DAY 1
     Dates: start: 20140520
  18. ACETAMINOPHEN. [Concomitant]
     Active Substance: ACETAMINOPHEN
     Indication: PREMEDICATION
     Dosage: AS REQUIRED
     Route: 048
     Dates: start: 20140521
  19. LORAZEPAM. [Concomitant]
     Active Substance: LORAZEPAM
     Indication: NAUSEA
  20. PROMETHAZINE [Concomitant]
     Active Substance: PROMETHAZINE\PROMETHAZINE HYDROCHLORIDE
     Indication: NAUSEA
     Dosage: AS REQUIRED
     Route: 048
     Dates: start: 20140523
  21. ALOXI [Concomitant]
     Active Substance: PALONOSETRON HYDROCHLORIDE
     Indication: PREMEDICATION
     Dosage: AS REQUIRED
     Route: 040
     Dates: start: 20140521
  22. CYCLOPHOSPHAMIDE. [Suspect]
     Active Substance: CYCLOPHOSPHAMIDE
     Indication: BREAST CANCER
     Route: 042
     Dates: start: 20140828
  23. PROCET [Concomitant]
     Active Substance: ACETAMINOPHEN\HYDROCODONE BITARTRATE
     Indication: BREAST PAIN
     Dosage: 10/325 MG AS REQUIRED
     Route: 048
     Dates: start: 20140512
  24. PEPCID-F [Concomitant]
     Indication: PREMEDICATION
     Dosage: AS REQUIRED
     Route: 040
     Dates: start: 20140521
  25. NEULASTA [Concomitant]
     Active Substance: PEGFILGRASTIM
     Indication: NEUTROPENIA
     Dosage: AS REQUIRED
     Route: 058
     Dates: start: 20140828

REACTIONS (2)
  - Dehydration [Recovered/Resolved]
  - Anaemia [Recovered/Resolved]

NARRATIVE: CASE EVENT DATE: 20141003
